FAERS Safety Report 10457559 (Version 2)
Quarter: 2014Q3

REPORT INFORMATION
  Report Type: Spontaneous
  Country: US (occurrence: US)
  Receive Date: 20140916
  Receipt Date: 20140916
  Transmission Date: 20150326
  Serious: Yes (Hospitalization)
  Sender: FDA-Public Use
  Company Number: US-MYLANLABS-2014M1003892

PATIENT

DRUGS (4)
  1. VALACICLOVIR HYDROCHLORIDE [Suspect]
     Active Substance: VALACYCLOVIR HYDROCHLORIDE
     Dosage: 500 MG, TID
     Dates: start: 201308
  2. VALTREX [Suspect]
     Active Substance: VALACYCLOVIR HYDROCHLORIDE
     Indication: OPHTHALMIC HERPES ZOSTER
     Dosage: 500 MG, QD
     Route: 048
     Dates: start: 2004, end: 2012
  3. MULTIVITAMIN                       /07504101/ [Concomitant]
     Active Substance: VITAMINS
     Dosage: UNK
  4. VALACICLOVIR HYDROCHLORIDE [Suspect]
     Active Substance: VALACYCLOVIR HYDROCHLORIDE
     Indication: OPHTHALMIC HERPES ZOSTER
     Dosage: 500 MG, QD
     Route: 048
     Dates: start: 2012, end: 201308

REACTIONS (5)
  - Drug effect decreased [Recovered/Resolved with Sequelae]
  - Corneal transplant [Recovered/Resolved with Sequelae]
  - Eye infection [Recovered/Resolved with Sequelae]
  - Eye disorder [Recovered/Resolved with Sequelae]
  - Eye excision [Recovered/Resolved with Sequelae]

NARRATIVE: CASE EVENT DATE: 201308
